FAERS Safety Report 8374380-9 (Version None)
Quarter: 2012Q2

REPORT INFORMATION
  Report Type: 
  Country: None (occurrence: None)
  Receive Date: 20120521
  Receipt Date: 20120511
  Transmission Date: 20120825
  Serious: Yes (Hospitalization)
  Sender: FDA-Public Use
  Company Number: US-ABBOTT-11P-163-0866720-00

PATIENT
  Sex: Male

DRUGS (5)
  1. KALETRA [Suspect]
     Indication: MATERNAL EXPOSURE TIMING UNSPECIFIED
     Route: 064
  2. DARUNAVIR HYDRATE [Concomitant]
     Indication: MATERNAL EXPOSURE TIMING UNSPECIFIED
     Route: 064
  3. COMBIVIR [Concomitant]
     Indication: MATERNAL EXPOSURE TIMING UNSPECIFIED
     Route: 064
  4. ZIDOVUDINE [Concomitant]
     Indication: MATERNAL EXPOSURE TIMING UNSPECIFIED
     Route: 064
  5. RITONAVIR [Suspect]
     Indication: MATERNAL EXPOSURE TIMING UNSPECIFIED
     Route: 064

REACTIONS (3)
  - FOETAL GROWTH RESTRICTION [None]
  - FOETAL EXPOSURE DURING PREGNANCY [None]
  - PREMATURE BABY [None]
